FAERS Safety Report 23246221 (Version 1)
Quarter: 2023Q4

REPORT INFORMATION
  Report Type: Spontaneous
  Country: US (occurrence: US)
  Receive Date: 20231130
  Receipt Date: 20231130
  Transmission Date: 20240110
  Serious: Yes (Hospitalization)
  Sender: FDA-Public Use
  Company Number: US-MYLANLABS-2023M1126953

PATIENT
  Age: 74 Year
  Sex: Female

DRUGS (5)
  1. CLADRIBINE [Suspect]
     Active Substance: CLADRIBINE
     Indication: Waldenstrom^s macroglobulinaemia
     Dosage: UNK, RECEIVED 2 CYCLES
     Route: 065
  2. DOXORUBICIN [Suspect]
     Active Substance: DOXORUBICIN
     Indication: Waldenstrom^s macroglobulinaemia
     Dosage: UNK, RECEIVED 6 CYCLES
     Route: 065
  3. BENDAMUSTINE HYDROCHLORIDE [Suspect]
     Active Substance: BENDAMUSTINE HYDROCHLORIDE
     Indication: Waldenstrom^s macroglobulinaemia
     Dosage: UNK, RECEIVED 6 CYCLES
     Route: 065
  4. BORTEZOMIB [Concomitant]
     Active Substance: BORTEZOMIB
     Indication: Waldenstrom^s macroglobulinaemia
     Dosage: UNK, RECEIVED 6 CYCLES
     Route: 065
  5. RITUXIMAB [Concomitant]
     Active Substance: RITUXIMAB
     Indication: Waldenstrom^s macroglobulinaemia
     Dosage: UNK, 1 WEEK
     Route: 065

REACTIONS (1)
  - Myelodysplastic syndrome [Recovering/Resolving]
